FAERS Safety Report 13738584 (Version 1)
Quarter: 2017Q3

REPORT INFORMATION
  Report Type: Report from Study
  Country: US (occurrence: US)
  Receive Date: 20170710
  Receipt Date: 20170710
  Transmission Date: 20171127
  Serious: No
  Sender: FDA-Public Use
  Company Number: US-SAOL THERAPEUTICS-2016SAO00401

PATIENT
  Age: 44 Year
  Sex: Female

DRUGS (8)
  1. COMPOUNDED BACLOFEN [Suspect]
     Active Substance: BACLOFEN
     Indication: BREAST DISORDER
     Dosage: 268.13 ?G, \DAY
     Route: 037
     Dates: start: 20160526
  2. BUPIVACAINE. [Suspect]
     Active Substance: BUPIVACAINE
     Dosage: 10.055 MG, \DAY
     Route: 037
     Dates: start: 20160526
  3. BUPIVACAINE. [Suspect]
     Active Substance: BUPIVACAINE
     Dosage: 14.471 ?G, \DAY
     Route: 037
     Dates: start: 20160526
  4. DILAUDID [Suspect]
     Active Substance: HYDROMORPHONE HYDROCHLORIDE
     Dosage: 3.352 MG, \DAY
     Route: 037
     Dates: start: 20160526
  5. CLONIDINE. [Suspect]
     Active Substance: CLONIDINE
     Dosage: 100.55 ?G, \DAY
     Route: 037
     Dates: start: 20160526
  6. COMPOUNDED BACLOFEN [Suspect]
     Active Substance: BACLOFEN
     Indication: PAIN
     Dosage: 385.89 ?G\DAY
     Route: 037
     Dates: start: 20160526
  7. DILAUDID [Suspect]
     Active Substance: HYDROMORPHONE HYDROCHLORIDE
     Dosage: 4.824 MG, \DAY
     Route: 037
     Dates: start: 20160526
  8. CLONIDINE. [Suspect]
     Active Substance: CLONIDINE
     Dosage: 144.71 ?G, \DAY
     Route: 037
     Dates: start: 20160526

REACTIONS (3)
  - Pain [Recovered/Resolved]
  - Off label use [Unknown]
  - Device inversion [Recovered/Resolved]

NARRATIVE: CASE EVENT DATE: 20160720
